FAERS Safety Report 23609205 (Version 1)
Quarter: 2024Q1

REPORT INFORMATION
  Report Type: Spontaneous
  Country: US (occurrence: US)
  Receive Date: 20240308
  Receipt Date: 20240308
  Transmission Date: 20240409
  Serious: No
  Sender: FDA-Public Use
  Company Number: US-BAUSCHBL-2024BNL002605

PATIENT
  Sex: Female

DRUGS (2)
  1. TIMOPTIC [Suspect]
     Active Substance: TIMOLOL MALEATE
     Indication: Product used for unknown indication
     Route: 065
  2. TIMOPTIC [Suspect]
     Active Substance: TIMOLOL MALEATE

REACTIONS (4)
  - Burning sensation [Unknown]
  - Product use issue [Unknown]
  - Product lot number issue [Unknown]
  - Product expiration date issue [Unknown]
